FAERS Safety Report 17215935 (Version 1)
Quarter: 2019Q4

REPORT INFORMATION
  Report Type: Spontaneous
  Country: NL (occurrence: NL)
  Receive Date: 20191230
  Receipt Date: 20191230
  Transmission Date: 20200122
  Serious: Yes (Other)
  Sender: FDA-Public Use
  Company Number: NL-MYLANLABS-2019M1129546

PATIENT
  Age: 66 Year
  Sex: Female

DRUGS (2)
  1. SALBUTAMOL [Suspect]
     Active Substance: ALBUTEROL
     Indication: PRODUCT USED FOR UNKNOWN INDICATION
     Dosage: WO PUFFS FROM BOTH INHALERS AFTER BREAKFAST AND ALSO BEFORE GOING TO SLEEP 2 PUFFS.
  2. ALVESCO [Suspect]
     Active Substance: CICLESONIDE
     Indication: PRODUCT USED FOR UNKNOWN INDICATION
     Dosage: WO PUFFS FROM BOTH INHALERS AFTER BREAKFAST AND ALSO BEFORE GOING TO SLEEP 2 PUFFS.
     Route: 055

REACTIONS (7)
  - Pulmonary function test decreased [Unknown]
  - Dyspnoea [Unknown]
  - Glaucoma [Unknown]
  - Cataract [Unknown]
  - Intraocular pressure increased [Unknown]
  - Blepharitis [Unknown]
  - Tinnitus [Unknown]
